FAERS Safety Report 10208952 (Version 1)
Quarter: 2014Q2

REPORT INFORMATION
  Report Type: Spontaneous
  Country: US (occurrence: US)
  Receive Date: 20140530
  Receipt Date: 20140530
  Transmission Date: 20141212
  Serious: Yes (Hospitalization, Other)
  Sender: FDA-Public Use
  Company Number: US-GILEAD-2014-0103831

PATIENT
  Sex: Female

DRUGS (3)
  1. LETAIRIS [Suspect]
     Indication: PRODUCT USED FOR UNKNOWN INDICATION
     Dosage: 10 MG, QD
     Route: 065
     Dates: start: 20111202
  2. ADCIRCA [Concomitant]
  3. WARFARIN [Concomitant]

REACTIONS (4)
  - Limb injury [Unknown]
  - Pneumothorax [Unknown]
  - Renal disorder [Unknown]
  - Bladder disorder [Unknown]
